FAERS Safety Report 12290421 (Version 1)
Quarter: 2016Q2

REPORT INFORMATION
  Report Type: Spontaneous
  Country: HU (occurrence: HU)
  Receive Date: 20160421
  Receipt Date: 20160421
  Transmission Date: 20160815
  Serious: Yes (Hospitalization)
  Sender: FDA-Public Use
  Company Number: PHHY2016HU042417

PATIENT
  Age: 16 Year
  Sex: Female
  Weight: 68 kg

DRUGS (5)
  1. BIPERIDEN [Concomitant]
     Active Substance: BIPERIDEN
     Indication: ABNORMAL BEHAVIOUR
     Dosage: UNK
     Route: 065
  2. METRONIDAZOLE. [Concomitant]
     Active Substance: METRONIDAZOLE
     Indication: GENITAL INFECTION FEMALE
     Dosage: UNK
     Route: 065
  3. ALPRAZOLAM. [Concomitant]
     Active Substance: ALPRAZOLAM
     Indication: ABNORMAL BEHAVIOUR
     Dosage: UNK
     Route: 065
  4. RISPERDON [Concomitant]
     Active Substance: RISPERIDONE
     Indication: ABNORMAL BEHAVIOUR
     Dosage: UNK
     Route: 065
  5. TEGRETOL CR [Suspect]
     Active Substance: CARBAMAZEPINE
     Indication: SELF INJURIOUS BEHAVIOUR
     Dosage: 200 MG, BID
     Route: 048
     Dates: start: 201505, end: 20150621

REACTIONS (17)
  - Rash [Recovered/Resolved]
  - Vomiting [Unknown]
  - Tonsillar hypertrophy [Recovered/Resolved]
  - Dermatitis [Recovered/Resolved]
  - Lymphadenopathy [Recovered/Resolved]
  - Drug reaction with eosinophilia and systemic symptoms [Recovered/Resolved]
  - Tachycardia [Unknown]
  - Rash morbilliform [Recovered/Resolved]
  - Drug eruption [Recovered/Resolved]
  - Hepatic enzyme increased [Recovered/Resolved]
  - Contusion [Recovered/Resolved]
  - Lip oedema [Recovered/Resolved]
  - Rash generalised [Recovered/Resolved]
  - Pyrexia [Recovered/Resolved]
  - Conjunctival hyperaemia [Recovered/Resolved]
  - Hepatosplenomegaly [Recovered/Resolved]
  - Diarrhoea [Unknown]

NARRATIVE: CASE EVENT DATE: 20150619
